FAERS Safety Report 4835892-5 (Version None)
Quarter: 2005Q4

REPORT INFORMATION
  Report Type: 
  Country: None (occurrence: None)
  Receive Date: 20051118
  Receipt Date: 20051111
  Transmission Date: 20060501
  Serious: No
  Sender: FDA-Public Use
  Company Number: 163-20785-05100086

PATIENT
  Age: 38 Year
  Sex: Male

DRUGS (1)
  1. THALOMID [Suspect]
     Indication: HIV INFECTION
     Dosage: 100 MG, DAILY, ORAL
     Route: 048
     Dates: start: 20050722

REACTIONS (1)
  - NO ADVERSE EFFECT [None]
